FAERS Safety Report 21938010 (Version 1)
Quarter: 2023Q1

REPORT INFORMATION
  Report Type: Report from Study
  Country: US (occurrence: US)
  Receive Date: 20230201
  Receipt Date: 20230201
  Transmission Date: 20230417
  Serious: No
  Sender: FDA-Public Use
  Company Number: US-INCYTE CORPORATION-2021IN004479

PATIENT

DRUGS (2)
  1. PEMIGATINIB [Suspect]
     Active Substance: PEMIGATINIB
     Indication: Cholangiocarcinoma
     Dosage: 9 MILLIGRAM (9MG X 14 DAYS THEN 7 DAYS OFF Q NOON W/FOOD)
     Route: 048
     Dates: start: 20210506
  2. PEMIGATINIB [Suspect]
     Active Substance: PEMIGATINIB
     Dosage: 13.5 MILLIGRAM
     Route: 048

REACTIONS (2)
  - Constipation [Unknown]
  - Blood phosphorus increased [Unknown]
